FAERS Safety Report 8061707-0 (Version None)
Quarter: 2012Q1

REPORT INFORMATION
  Report Type: 
  Country: None (occurrence: None)
  Receive Date: 20120123
  Receipt Date: 20120116
  Transmission Date: 20120608
  Serious: Yes (Hospitalization)
  Sender: FDA-Public Use
  Company Number: US-BIOGENIDEC-2012BI001933

PATIENT
  Age: 51 Year
  Sex: Female

DRUGS (10)
  1. PROVIGIL [Concomitant]
     Indication: FATIGUE
     Route: 048
     Dates: start: 20090101
  2. TYSABRI [Suspect]
     Indication: MULTIPLE SCLEROSIS
     Route: 042
     Dates: start: 20090630
  3. PERCOCET [Concomitant]
     Indication: PAIN
     Route: 048
     Dates: start: 20060807
  4. FIORICET [Concomitant]
     Indication: HEADACHE
     Route: 048
     Dates: start: 20110101
  5. ZANAFLEX [Concomitant]
     Indication: MUSCLE SPASMS
     Route: 048
     Dates: start: 20060711
  6. LAMICTAL [Concomitant]
     Indication: CONVULSION
     Route: 048
     Dates: start: 20110520
  7. LORAZEPAM [Concomitant]
     Indication: ANXIETY
     Route: 048
     Dates: start: 20110801
  8. ANCEF [Concomitant]
     Indication: PROPHYLAXIS
     Route: 042
     Dates: start: 20120104, end: 20120104
  9. EFFEXOR [Concomitant]
     Indication: DEPRESSION
     Route: 048
     Dates: start: 20060802
  10. AUGMENTIN '125' [Concomitant]
     Indication: INFECTION
     Route: 048
     Dates: start: 20120105, end: 20120116

REACTIONS (1)
  - HIDRADENITIS [None]
